FAERS Safety Report 9923607 (Version 1)
Quarter: 2014Q1

REPORT INFORMATION
  Report Type: Spontaneous
  Country: US (occurrence: US)
  Receive Date: 20140225
  Receipt Date: 20140225
  Transmission Date: 20141002
  Serious: No
  Sender: FDA-Public Use
  Company Number: US-AMGEN-USASP2013088427

PATIENT
  Age: 61 Year
  Sex: Female

DRUGS (1)
  1. ENBREL [Suspect]
     Indication: RHEUMATOID ARTHRITIS
     Dosage: 50 MG, QWK
     Route: 065
     Dates: start: 20131101, end: 20131122

REACTIONS (7)
  - Drug effect incomplete [Not Recovered/Not Resolved]
  - Arthralgia [Not Recovered/Not Resolved]
  - Neck pain [Recovered/Resolved]
  - Muscle spasms [Recovered/Resolved]
  - Secretion discharge [Recovered/Resolved]
  - Throat irritation [Recovered/Resolved]
  - Lymphadenopathy [Recovered/Resolved]
